FAERS Safety Report 14320006 (Version 1)
Quarter: 2017Q4

REPORT INFORMATION
  Report Type: Spontaneous
  Country: DE (occurrence: DE)
  Receive Date: 20171222
  Receipt Date: 20171222
  Transmission Date: 20180321
  Serious: Yes (Congenital Anomaly)
  Sender: FDA-Public Use
  Company Number: DE-BIOGEN-2017BI00501339

PATIENT
  Age: 0 Day
  Sex: Male
  Weight: 3.75 kg

DRUGS (1)
  1. PLEGRIDY [Suspect]
     Active Substance: PEGINTERFERON BETA-1A
     Indication: MATERNAL EXPOSURE TIMING UNSPECIFIED
     Route: 064
     Dates: end: 201611

REACTIONS (2)
  - Foetal exposure during pregnancy [Recovered/Resolved]
  - Congenital knee dislocation [Unknown]

NARRATIVE: CASE EVENT DATE: 20171019
